FAERS Safety Report 25780724 (Version 2)
Quarter: 2025Q4

REPORT INFORMATION
  Report Type: Spontaneous
  Country: US (occurrence: US)
  Receive Date: 20250909
  Receipt Date: 20251016
  Transmission Date: 20260117
  Serious: Yes (Other)
  Sender: PFIZER
  Company Number: US-PFIZER INC-PV202500108648

PATIENT
  Age: 50 Year
  Sex: Female
  Weight: 69.4 kg

DRUGS (3)
  1. NURTEC ODT [Suspect]
     Active Substance: RIMEGEPANT SULFATE
     Indication: Migraine prophylaxis
     Dosage: 75 MG, ALTERNATE DAY (DISSOLVE 1 TABLET ON TONGUE EVERY OTHER DAY)
     Route: 048
     Dates: start: 20250326
  2. LAMOTRIGINE [Suspect]
     Active Substance: LAMOTRIGINE
     Indication: Migraine
     Dosage: 200 MG, DAILY
     Route: 048
     Dates: start: 20250507
  3. LAMOTRIGINE [Suspect]
     Active Substance: LAMOTRIGINE
     Indication: Neuralgia

REACTIONS (2)
  - Small fibre neuropathy [Unknown]
  - Condition aggravated [Unknown]
